FAERS Safety Report 9668702 (Version 2)
Quarter: 2015Q1

REPORT INFORMATION
  Report Type: Report from Study
  Country: US (occurrence: US)
  Receive Date: 20131105
  Receipt Date: 20150324
  Transmission Date: 20150721
  Serious: Yes (Death)
  Sender: FDA-Public Use
  Company Number: US-ROCHE-1299487

PATIENT
  Age: 44 Year
  Sex: Male

DRUGS (24)
  1. NORMAL SALINE [Concomitant]
     Active Substance: SODIUM CHLORIDE
     Route: 042
     Dates: start: 20110505
  2. REGLAN [Concomitant]
     Active Substance: METOCLOPRAMIDE HYDROCHLORIDE
     Route: 048
  3. LORTAB (UNITED STATES) [Concomitant]
     Route: 048
  4. AVASTIN [Suspect]
     Active Substance: BEVACIZUMAB
     Route: 042
  5. DIPHENHYDRAMINE [Concomitant]
     Active Substance: DIPHENHYDRAMINE
  6. THIOTEPA. [Concomitant]
     Active Substance: THIOTEPA
     Route: 037
     Dates: start: 20110805
  7. FENTANYL. [Concomitant]
     Active Substance: FENTANYL
     Route: 023
  8. DEXAMETHASONE. [Concomitant]
     Active Substance: DEXAMETHASONE
     Route: 048
  9. LOMOTIL (UNITED STATES) [Concomitant]
     Route: 048
  10. METHOTREXATE [Concomitant]
     Active Substance: METHOTREXATE
  11. PALONOSETRON [Concomitant]
     Active Substance: PALONOSETRON
  12. AVASTIN [Suspect]
     Active Substance: BEVACIZUMAB
     Indication: LUNG NEOPLASM MALIGNANT
     Route: 042
     Dates: start: 20081212
  13. ANZEMET [Concomitant]
     Active Substance: DOLASETRON MESYLATE
     Route: 065
  14. HYDROCORTISONE. [Concomitant]
     Active Substance: HYDROCORTISONE
  15. HERCEPTIN [Suspect]
     Active Substance: TRASTUZUMAB
     Indication: LUNG NEOPLASM MALIGNANT
     Route: 058
     Dates: start: 20081212
  16. TAXOL [Concomitant]
     Active Substance: PACLITAXEL
     Route: 065
  17. CIPRO [Concomitant]
     Active Substance: CIPROFLOXACIN HYDROCHLORIDE
     Route: 048
  18. DILAUDID [Concomitant]
     Active Substance: HYDROMORPHONE HYDROCHLORIDE
     Route: 065
  19. DECADRON [Concomitant]
     Active Substance: DEXAMETHASONE
     Route: 042
     Dates: start: 20110805
  20. TEMODAR [Concomitant]
     Active Substance: TEMOZOLOMIDE
     Route: 065
  21. TARCEVA [Suspect]
     Active Substance: ERLOTINIB HYDROCHLORIDE
     Indication: PRODUCT USED FOR UNKNOWN INDICATION
     Route: 048
  22. KYTRIL [Concomitant]
     Active Substance: GRANISETRON HYDROCHLORIDE
     Route: 042
     Dates: start: 20110805
  23. CARBOPLATIN. [Concomitant]
     Active Substance: CARBOPLATIN
     Route: 065
  24. METROGEL [Concomitant]
     Active Substance: METRONIDAZOLE
     Dosage: 1 APPLICATION BID
     Route: 065

REACTIONS (14)
  - Metastases to lung [Unknown]
  - Eating disorder [Unknown]
  - Acne [Unknown]
  - Death [Fatal]
  - Dermatitis [Unknown]
  - Visual acuity reduced [Unknown]
  - Feeling abnormal [Unknown]
  - Headache [Unknown]
  - Cerebral hypoperfusion [Unknown]
  - Fatigue [Unknown]
  - Leukopenia [Unknown]
  - Dilatation ventricular [Unknown]
  - Metastases to meninges [Unknown]
  - Cough [Unknown]

NARRATIVE: CASE EVENT DATE: 20111005
